FAERS Safety Report 9777540 (Version 1)
Quarter: 2013Q4

REPORT INFORMATION
  Report Type: Spontaneous
  Country: US (occurrence: US)
  Receive Date: 20131222
  Receipt Date: 20131222
  Transmission Date: 20140711
  Serious: No
  Sender: FDA-Public Use
  Company Number: US-009507513-1311USA003276

PATIENT
  Sex: Female

DRUGS (3)
  1. CORICIDIN HBP COUGH AND COLD [Suspect]
     Indication: COUGH
     Dosage: UNK, UNKNOWN
     Route: 048
  2. CORICIDIN HBP COUGH AND COLD [Suspect]
     Indication: PRODUCTIVE COUGH
  3. CORICIDIN HBP COUGH AND COLD [Suspect]
     Indication: PARANASAL SINUS HYPERSECRETION

REACTIONS (1)
  - Drug effect decreased [Unknown]
